FAERS Safety Report 6217166-3 (Version None)
Quarter: 2009Q2

REPORT INFORMATION
  Report Type: 
  Country: None (occurrence: None)
  Receive Date: 20090606
  Receipt Date: 20090602
  Transmission Date: 20091009
  Serious: Yes (Death, Hospitalization, Other)
  Sender: FDA-Public Use
  Company Number: PHHY2009US21674

PATIENT
  Age: 64 Year
  Sex: Male

DRUGS (6)
  1. MYCOPHENOLATE MOFETIL [Suspect]
     Indication: IMMUNOSUPPRESSION
     Dosage: UNK
     Dates: start: 20051201
  2. MYCOPHENOLATE MOFETIL [Suspect]
     Indication: HEART TRANSPLANT
  3. TACROLIMUS [Suspect]
     Indication: IMMUNOSUPPRESSION
     Dosage: UNK
     Dates: start: 20051201
  4. TACROLIMUS [Suspect]
     Indication: HEART TRANSPLANT
  5. PREDNISONE [Suspect]
     Indication: IMMUNOSUPPRESSION
     Dosage: UNK
     Dates: start: 20051201
  6. PREDNISONE [Suspect]
     Indication: HEART TRANSPLANT

REACTIONS (11)
  - AMERICAN TRYPANOSOMIASIS [None]
  - ANOREXIA [None]
  - ATRIAL FLUTTER [None]
  - DIARRHOEA [None]
  - EJECTION FRACTION DECREASED [None]
  - FAILURE TO THRIVE [None]
  - PYREXIA [None]
  - RENAL FAILURE [None]
  - TRANSPLANT REJECTION [None]
  - TREMOR [None]
  - VENTRICULAR HYPOKINESIA [None]
